FAERS Safety Report 9090227 (Version 1)
Quarter: 2013Q1

REPORT INFORMATION
  Report Type: Report from Study
  Country: US (occurrence: US)
  Receive Date: 20130201
  Receipt Date: 20130201
  Transmission Date: 20140127
  Serious: No
  Sender: FDA-Public Use
  Company Number: US-ABBOTT-12P-163-1029495-00

PATIENT
  Age: 70 Year
  Sex: Female

DRUGS (9)
  1. HUMIRA [Suspect]
     Indication: PSORIASIS
     Dosage: SAMPLE INJECTION
     Route: 058
     Dates: start: 20121127, end: 20121127
  2. HUMIRA [Suspect]
     Route: 058
     Dates: start: 20121227, end: 20121227
  3. HUMIRA [Suspect]
     Route: 058
     Dates: start: 20130103
  4. LORAZEPAM [Concomitant]
     Indication: INSOMNIA
     Dosage: AT NIGHT
  5. LORAZEPAM [Concomitant]
     Indication: ANXIETY
  6. ESCITALOPRAM [Concomitant]
     Indication: DEPRESSION
     Dosage: DAILY
  7. MULTIVITAMIN [Concomitant]
     Dosage: DAILY
  8. KICK ASS IMMUNE SYSTEM BOOSTER [Concomitant]
     Dosage: DAILY
  9. STELARA [Concomitant]

REACTIONS (12)
  - Inappropriate schedule of drug administration [Unknown]
  - Pruritus generalised [Not Recovered/Not Resolved]
  - Asthenia [Not Recovered/Not Resolved]
  - Balance disorder [Not Recovered/Not Resolved]
  - Psoriasis [Not Recovered/Not Resolved]
  - Contusion [Not Recovered/Not Resolved]
  - Depression [Not Recovered/Not Resolved]
  - Local swelling [Recovering/Resolving]
  - Decreased appetite [Not Recovered/Not Resolved]
  - Injection site pain [Not Recovered/Not Resolved]
  - Psoriasis [Not Recovered/Not Resolved]
  - Pain [Not Recovered/Not Resolved]
